FAERS Safety Report 4341676-7 (Version None)
Quarter: 2004Q2

REPORT INFORMATION
  Report Type: 
  Country: None (occurrence: None)
  Receive Date: 20040419
  Receipt Date: 20040419
  Transmission Date: 20050107
  Serious: Yes (Hospitalization)
  Sender: FDA-Public Use
  Company Number: None

PATIENT
  Age: 60 Year
  Sex: Male
  Weight: 62.1428 kg

DRUGS (7)
  1. CPT-II [Suspect]
     Indication: BRAIN NEOPLASM MALIGNANT
     Dosage: 750 MG /M2 , Q 3 WKS
     Dates: start: 20040330
  2. DILANTIN [Concomitant]
  3. KEPPRA [Concomitant]
  4. PEPCID [Concomitant]
  5. DEXAMETHASONE [Concomitant]
  6. BABY ASPRIN [Concomitant]
  7. NYSTATIN [Concomitant]

REACTIONS (4)
  - COUGH [None]
  - DYSPHAGIA [None]
  - DYSPNOEA [None]
  - PYREXIA [None]
